FAERS Safety Report 15355741 (Version 1)
Quarter: 2018Q3

REPORT INFORMATION
  Report Type: Spontaneous
  Country: US (occurrence: US)
  Receive Date: 20180830
  Receipt Date: 20180830
  Transmission Date: 20181010
  Serious: Yes (Hospitalization, Other)
  Sender: FDA-Public Use
  Company Number: None

PATIENT
  Age: 76 Year
  Sex: Male
  Weight: 106.2 kg

DRUGS (1)
  1. MINOCYCLINE [Suspect]
     Active Substance: MINOCYCLINE\MINOCYCLINE HYDROCHLORIDE
     Indication: ACNE
     Dosage: ?          QUANTITY:90 CAPSULE(S);?
     Route: 048

REACTIONS (6)
  - Balance disorder [None]
  - Tinnitus [None]
  - Visual impairment [None]
  - Vertigo [None]
  - Asthenia [None]
  - Palpitations [None]

NARRATIVE: CASE EVENT DATE: 20180816
